FAERS Safety Report 11444348 (Version 1)
Quarter: 2015Q3

REPORT INFORMATION
  Report Type: Spontaneous
  Country: JP (occurrence: JP)
  Receive Date: 20150902
  Receipt Date: 20150902
  Transmission Date: 20151125
  Serious: Yes (Other)
  Sender: FDA-Public Use
  Company Number: JP-HOSPIRA-2986712

PATIENT
  Age: 51 Year
  Sex: Female

DRUGS (6)
  1. IFOSFAMIDE. [Suspect]
     Active Substance: IFOSFAMIDE
     Indication: SYNOVIAL SARCOMA
     Dosage: 7.5 G/M^2 FOR 9 CYCLES, 10 G/M^2 FOR 10 CYCLES, TOTAL DOSE: 167.5 G/M^2
     Route: 042
  2. CYCLOPHOSPHAMIDE. [Suspect]
     Active Substance: CYCLOPHOSPHAMIDE
     Indication: SYNOVIAL SARCOMA
     Dosage: 49 DAYS, TOTAL DOSE: 4900 MG
     Route: 048
  3. DOCETAXEL. [Suspect]
     Active Substance: DOCETAXEL
     Indication: SYNOVIAL SARCOMA
     Dosage: 2 CYCLES, TOTAL DOSE: 120 MG/M^2
     Route: 042
  4. DOXORUBICIN [Suspect]
     Active Substance: DOXORUBICIN
     Indication: SYNOVIAL SARCOMA
     Dosage: 9 CYCLES, TOTAL DOSE: 540 MG/M^2
     Route: 042
  5. GEMCITABINE HYDROCHLORIDE. [Suspect]
     Active Substance: GEMCITABINE HYDROCHLORIDE
     Indication: SYNOVIAL SARCOMA
     Dosage: 2 CYCLES, TOTAL DOSE: 3600 MG/M^2
     Route: 042
  6. ETOPOSIDE. [Suspect]
     Active Substance: ETOPOSIDE
     Indication: SYNOVIAL SARCOMA
     Dosage: 10 CYCLES, TOTAL DOSE: 3000 MG/M^2
     Route: 042

REACTIONS (1)
  - Acute myeloid leukaemia [Unknown]
